FAERS Safety Report 16915886 (Version 1)
Quarter: 2019Q4

REPORT INFORMATION
  Report Type: Spontaneous
  Country: US (occurrence: US)
  Receive Date: 20191014
  Receipt Date: 20191014
  Transmission Date: 20200122
  Serious: No
  Sender: FDA-Public Use
  Company Number: US-SAREPTA THERAPEUTICS INC.-SRP2019-000511

PATIENT
  Age: 17 Year
  Sex: Male

DRUGS (2)
  1. ENALAPRIL MALEATE. [Concomitant]
     Active Substance: ENALAPRIL MALEATE
     Indication: PRODUCT USED FOR UNKNOWN INDICATION
     Dosage: 2.5 MG, BID
     Route: 048
     Dates: start: 20180608
  2. EXONDYS 51 [Suspect]
     Active Substance: ETEPLIRSEN
     Indication: DUCHENNE MUSCULAR DYSTROPHY
     Dosage: 2000 MG, WEEKLY
     Route: 042
     Dates: start: 20180228

REACTIONS (6)
  - Breath sounds abnormal [Unknown]
  - Tachycardia [Unknown]
  - Pyrexia [Unknown]
  - Hyperhidrosis [Unknown]
  - Abdominal tenderness [Unknown]
  - Product dose omission [Unknown]

NARRATIVE: CASE EVENT DATE: 20190806
